FAERS Safety Report 24191876 (Version 1)
Quarter: 2024Q3

REPORT INFORMATION
  Report Type: Spontaneous
  Country: US (occurrence: US)
  Receive Date: 20240809
  Receipt Date: 20240809
  Transmission Date: 20241016
  Serious: No
  Sender: JOHNSON AND JOHNSON
  Company Number: US-JNJFOC-20240817559

PATIENT

DRUGS (1)
  1. RYBREVANT [Suspect]
     Active Substance: AMIVANTAMAB-VMJW
     Indication: Product used for unknown indication
     Route: 065

REACTIONS (4)
  - Rash [Unknown]
  - Pruritus [Unknown]
  - Skin lesion [Unknown]
  - Paronychia [Unknown]
